FAERS Safety Report 5000055-X (Version None)
Quarter: 2006Q2

REPORT INFORMATION
  Report Type: 
  Country: None (occurrence: None)
  Receive Date: 20060509
  Receipt Date: 20060417
  Transmission Date: 20061013
  Serious: Yes (Hospitalization)
  Sender: FDA-Public Use
  Company Number: JP200604000313

PATIENT
  Age: 15 Year
  Sex: Male
  Weight: 45.5 kg

DRUGS (3)
  1. SOMATROPIN(SOMATROPIN UNKNOWN FORMULATION) UNKNOWN [Suspect]
     Indication: GROWTH HORMONE DEFICIENCY
     Dosage: 0.8 MG, DAILY (1/D), SUBCUTANEOUS; 1 MG, DAILY (1/D), SUBCUTANEOUS
     Route: 058
     Dates: start: 20030828, end: 20050323
  2. SOMATROPIN(SOMATROPIN UNKNOWN FORMULATION) UNKNOWN [Suspect]
     Indication: GROWTH HORMONE DEFICIENCY
     Dosage: 0.8 MG, DAILY (1/D), SUBCUTANEOUS; 1 MG, DAILY (1/D), SUBCUTANEOUS
     Route: 058
     Dates: start: 20050324, end: 20060329
  3. LEVOTHYROXINE SODIUM [Concomitant]

REACTIONS (1)
  - DIABETES MELLITUS [None]
